FAERS Safety Report 19010192 (Version 2)
Quarter: 2021Q1

REPORT INFORMATION
  Report Type: Spontaneous
  Country: FI (occurrence: FI)
  Receive Date: 20210316
  Receipt Date: 20210329
  Transmission Date: 20210420
  Serious: Yes (Other)
  Sender: FDA-Public Use
  Company Number: FI-AMGEN-FINSP2019181807

PATIENT

DRUGS (4)
  1. DEXAMETHASONE. [Suspect]
     Active Substance: DEXAMETHASONE
     Indication: PLASMA CELL MYELOMA
     Dosage: 40 MILLIGRAM, ON DAYS 1,8,15,22 ON CYCLES 1?8, THEREAFTER ON DAYS 1, 15.
     Route: 065
  2. ELOTUZUMAB. [Suspect]
     Active Substance: ELOTUZUMAB
     Indication: PLASMA CELL MYELOMA
     Dosage: 20 MILLIGRAM/KILOGRAM, QWK, ON DAYS 1,8,15 IN CYCLES 1?2, THEREAFTER ON DAYS 1,15
     Route: 065
  3. CARFILZOMIB [Suspect]
     Active Substance: CARFILZOMIB
     Indication: PLASMA CELL MYELOMA
     Dosage: 20 MILLIGRAM/SQ. METER, QWK ON C1D1
     Route: 065
  4. CARFILZOMIB [Suspect]
     Active Substance: CARFILZOMIB
     Dosage: 70 MILLIGRAM/SQ. METER, IN 28 DAY CYCLES ON DAYS 1,8,15 IN CYCLES 1?8 ON DAYS 1,15 THEREAFTER
     Route: 065

REACTIONS (13)
  - Autoimmune haemolytic anaemia [Recovered/Resolved]
  - Dyspnoea [Recovered/Resolved]
  - Plasma cell myeloma [Unknown]
  - Neutropenia [Unknown]
  - Adverse event [Unknown]
  - Infection [Unknown]
  - Thrombotic microangiopathy [Unknown]
  - Respiratory tract infection [Unknown]
  - Pulmonary embolism [Unknown]
  - Off label use [Unknown]
  - Infusion related reaction [Unknown]
  - Diarrhoea [Recovered/Resolved]
  - Insomnia [Unknown]
